FAERS Safety Report 8364126-2 (Version None)
Quarter: 2012Q2

REPORT INFORMATION
  Report Type: 
  Country: None (occurrence: None)
  Receive Date: 20120514
  Receipt Date: 20120502
  Transmission Date: 20120825
  Serious: Yes (Other)
  Sender: FDA-Public Use
  Company Number: 2012SP023668

PATIENT
  Age: 20 Year
  Sex: Female
  Weight: 63.9572 kg

DRUGS (1)
  1. IMPLANON [Suspect]
     Indication: CONTRACEPTION
     Dates: start: 20110401

REACTIONS (5)
  - ABORTION SPONTANEOUS [None]
  - MENORRHAGIA [None]
  - PREGNANCY WITH IMPLANT CONTRACEPTIVE [None]
  - IMPLANT SITE PAIN [None]
  - IMPLANT SITE RASH [None]
